FAERS Safety Report 19761547 (Version 1)
Quarter: 2021Q3

REPORT INFORMATION
  Report Type: Spontaneous
  Country: US (occurrence: US)
  Receive Date: 20210826
  Receipt Date: 20210826
  Transmission Date: 20211014
  Serious: No
  Sender: FDA-Public Use
  Company Number: None

PATIENT
  Sex: Male
  Weight: 92.2 kg

DRUGS (2)
  1. CISPLATIN. [Suspect]
     Active Substance: CISPLATIN
  2. ETOPOSIDE (VP?16) [Concomitant]
     Active Substance: ETOPOSIDE

REACTIONS (1)
  - Lung adenocarcinoma [None]

NARRATIVE: CASE EVENT DATE: 20210319
